FAERS Safety Report 4982053-5 (Version None)
Quarter: 2006Q2

REPORT INFORMATION
  Report Type: 
  Country: None (occurrence: None)
  Receive Date: 20060425
  Receipt Date: 20060331
  Transmission Date: 20061013
  Serious: Yes (Death)
  Sender: FDA-Public Use
  Company Number: GB-MERCK-0604GBR00004

PATIENT
  Age: 77 Year
  Sex: Male
  Weight: 70 kg

DRUGS (3)
  1. ZETIA [Suspect]
     Indication: BLOOD CHOLESTEROL
     Route: 048
     Dates: start: 20060106, end: 20060106
  2. NITROGLYCERIN [Concomitant]
     Indication: ANGINA PECTORIS
     Route: 055
  3. ATENOLOL [Concomitant]
     Indication: ANGINA PECTORIS
     Route: 065

REACTIONS (6)
  - ANAPHYLACTIC SHOCK [None]
  - ARTERIOSCLEROSIS CORONARY ARTERY [None]
  - CARDIO-RESPIRATORY ARREST [None]
  - MYOCARDIAL ISCHAEMIA [None]
  - PULMONARY CONGESTION [None]
  - VENTRICULAR FIBRILLATION [None]
